FAERS Safety Report 7375265-7 (Version None)
Quarter: 2011Q1

REPORT INFORMATION
  Report Type: 
  Country: None (occurrence: None)
  Receive Date: 20110325
  Receipt Date: 20110316
  Transmission Date: 20110831
  Serious: Yes (Hospitalization)
  Sender: FDA-Public Use
  Company Number: JP-ROCHE-767045

PATIENT
  Age: 50 Year
  Sex: Female

DRUGS (5)
  1. EMEND [Suspect]
     Indication: PROPHYLAXIS OF NAUSEA AND VOMITING
     Dosage: DOSAGE IS UNCERTAIN.
     Route: 048
  2. DEXAMETHASONE [Suspect]
     Indication: PROPHYLAXIS OF NAUSEA AND VOMITING
     Dosage: DOSAGE IS UNCERTAIN.
     Route: 065
  3. ENDOXAN [Suspect]
     Indication: BREAST CANCER
     Route: 042
  4. KYTRIL [Suspect]
     Indication: PROPHYLAXIS OF NAUSEA AND VOMITING
     Dosage: DOSAGE IS UNCERTAIN
     Route: 065
  5. ADRIACIN [Concomitant]
     Route: 042

REACTIONS (1)
  - INAPPROPRIATE ANTIDIURETIC HORMONE SECRETION [None]
